FAERS Safety Report 8836604 (Version 1)
Quarter: 2012Q4

REPORT INFORMATION
  Report Type: Spontaneous
  Country: IT (occurrence: None)
  Receive Date: 20121009
  Receipt Date: 20121009
  Transmission Date: 20130627
  Serious: Yes (Other)
  Sender: FDA-Public Use
  Company Number: 2012AP003175

PATIENT
  Age: 89 Year
  Sex: Male

DRUGS (1)
  1. LEVOFLOXACIN (LEVOFLOXACIN) [Suspect]
     Indication: STREPTOCOCCAL PYODERMA
     Route: 048
     Dates: start: 20110408, end: 20110411

REACTIONS (1)
  - Muscle strain [None]
